FAERS Safety Report 7068220-8 (Version None)
Quarter: 2010Q4

REPORT INFORMATION
  Report Type: 
  Country: None (occurrence: None)
  Receive Date: 20101020
  Receipt Date: 20101008
  Transmission Date: 20110411
  Serious: Yes (Other)
  Sender: FDA-Public Use
  Company Number: GER/UKI/10/0016277

PATIENT
  Age: 72 Year
  Sex: Female

DRUGS (2)
  1. ALENDRONIC ACID [Suspect]
     Indication: OSTEOPOROSIS
     Dosage: 70 MG, 1 IN 1 WK, ORAL
     Route: 048
     Dates: start: 20100812, end: 20101002
  2. CALCEOS (LEKOVIT CA) [Concomitant]

REACTIONS (1)
  - HAEMATURIA [None]
